FAERS Safety Report 9787193 (Version 2)
Quarter: 2014Q1

REPORT INFORMATION
  Report Type: Spontaneous
  Country: US (occurrence: US)
  Receive Date: 20131229
  Receipt Date: 20140131
  Transmission Date: 20141002
  Serious: No
  Sender: FDA-Public Use
  Company Number: US-TEVA-451313USA

PATIENT
  Age: 28 Year
  Sex: Female
  Weight: 53.57 kg

DRUGS (2)
  1. PARAGARD 380A [Suspect]
     Indication: CONTRACEPTION
     Route: 015
     Dates: start: 20131204, end: 20131212
  2. ORTHO-TRYCYCLEN LO [Concomitant]
     Indication: CONTRACEPTION

REACTIONS (3)
  - Menorrhagia [Recovered/Resolved]
  - Device expulsion [Recovered/Resolved]
  - Abdominal pain lower [Recovered/Resolved]
